FAERS Safety Report 5210319-2 (Version None)
Quarter: 2007Q1

REPORT INFORMATION
  Report Type: 
  Country: None (occurrence: None)
  Receive Date: 20070111
  Receipt Date: 20070104
  Transmission Date: 20070707
  Serious: Yes (Hospitalization)
  Sender: FDA-Public Use
  Company Number: BEWYE702330NOV06

PATIENT
  Age: 35 Year
  Sex: Female

DRUGS (9)
  1. EFFEXOR [Suspect]
     Indication: DEPRESSION
     Dosage: 300 MG 1X PER 1 DAY; SEE IMAGE
     Route: 048
     Dates: start: 20060101
  2. EFFEXOR [Suspect]
     Indication: DEPRESSION
     Dosage: 300 MG 1X PER 1 DAY; SEE IMAGE
     Route: 048
     Dates: start: 20060601
  3. METOPROLOL SUCCINATE [Suspect]
     Indication: HYPERTENSION
     Dosage: 200 MG 1X PER 1 DAY
     Route: 048
     Dates: start: 20061028, end: 20061201
  4. METOPROLOL SUCCINATE [Suspect]
     Indication: HYPERTENSION
     Dosage: 200 MG 1X PER 1 DAY
     Route: 048
     Dates: start: 20061201
  5. MYOLASTAN (TETRAZEPAM) [Concomitant]
  6. MOTILIUM (DEOMPERIDONE) [Concomitant]
  7. PRIMPERAN TAB [Concomitant]
  8. XANAX [Concomitant]
  9. ZOPICLONE (ZOPICLONE) [Concomitant]

REACTIONS (1)
  - ATRIOVENTRICULAR BLOCK [None]
